FAERS Safety Report 5321990-9 (Version None)
Quarter: 2007Q2

REPORT INFORMATION
  Report Type: 
  Country: None (occurrence: None)
  Receive Date: 20070511
  Receipt Date: 20070507
  Transmission Date: 20071010
  Serious: Yes (Other)
  Sender: FDA-Public Use
  Company Number: PHNU2007DE01442

PATIENT
  Age: 79 Year
  Sex: Male
  Weight: 89 kg

DRUGS (5)
  1. DESFERAL [Suspect]
     Indication: HAEMOCHROMATOSIS
     Dosage: 2 G, QD
     Route: 058
     Dates: start: 20070301, end: 20070330
  2. HYDROCHLOROTHIAZIDE [Concomitant]
     Route: 048
  3. EUTHYROX [Concomitant]
     Route: 048
  4. ALLOPURINOL [Concomitant]
     Dosage: 150 MG, QD
     Route: 048
  5. DILTIAZEM [Concomitant]
     Route: 048

REACTIONS (3)
  - BLINDNESS DAY [None]
  - OPTIC NEURITIS [None]
  - VISUAL ACUITY REDUCED [None]
